FAERS Safety Report 11802983 (Version 2)
Quarter: 2015Q4

REPORT INFORMATION
  Report Type: Report from Study
  Country: CZ (occurrence: CZ)
  Receive Date: 20151204
  Receipt Date: 20151204
  Transmission Date: 20160305
  Serious: Yes (Hospitalization)
  Sender: FDA-Public Use
  Company Number: CZ-BIOGENIDEC-2015BI143755

PATIENT
  Age: 30 Year
  Sex: Female

DRUGS (3)
  1. TYSABRI [Suspect]
     Active Substance: NATALIZUMAB
     Indication: MULTIPLE SCLEROSIS
     Route: 042
     Dates: start: 20130102
  2. COLECALCIFEROLUM [Concomitant]
     Route: 048
  3. VIGANTOL [Concomitant]
     Indication: VITAMIN D DEFICIENCY

REACTIONS (1)
  - Optic nerve cupping [Recovered/Resolved]

NARRATIVE: CASE EVENT DATE: 20150117
